FAERS Safety Report 9983933 (Version 1)
Quarter: 2014Q1

REPORT INFORMATION
  Report Type: Spontaneous
  Country: GB (occurrence: GB)
  Receive Date: 20140307
  Receipt Date: 20140307
  Transmission Date: 20141002
  Serious: Yes (Other)
  Sender: FDA-Public Use
  Company Number: GB-UCBSA-113649

PATIENT
  Age: 49 Year
  Sex: Male

DRUGS (1)
  1. CIMZIA [Suspect]
     Indication: RHEUMATOID ARTHRITIS
     Dosage: FIRST LOADING DOSE: 400 MG
     Route: 058
     Dates: start: 20140220

REACTIONS (2)
  - Hypoaesthesia [Unknown]
  - Burning sensation [Unknown]
